FAERS Safety Report 6426646-7 (Version None)
Quarter: 2009Q4

REPORT INFORMATION
  Report Type: 
  Country: None (occurrence: None)
  Receive Date: 20091104
  Receipt Date: 20091026
  Transmission Date: 20100525
  Serious: Yes (Hospitalization)
  Sender: FDA-Public Use
  Company Number: GXKR2009KR11061

PATIENT
  Age: 45 Year
  Sex: Male
  Weight: 46 kg

DRUGS (11)
  1. ISONIAZID [Suspect]
     Indication: PULMONARY TUBERCULOSIS
     Dosage: 400 MG
     Route: 065
  2. ISONIAZID [Suspect]
     Indication: TUBERCULOUS PLEURISY
  3. ETHAMBUTOL (NGX) [Suspect]
     Indication: PULMONARY TUBERCULOSIS
     Dosage: 1200 MG
     Route: 065
  4. ETHAMBUTOL (NGX) [Suspect]
     Indication: TUBERCULOUS PLEURISY
     Dosage: 800 MG
     Route: 065
  5. RIFAMPICIN (NGX) [Suspect]
     Indication: PULMONARY TUBERCULOSIS
     Dosage: 600 MG
     Route: 065
  6. RIFAMPICIN (NGX) [Suspect]
     Indication: TUBERCULOUS PLEURISY
  7. DEXAMETHASONE (NGX) [Suspect]
     Indication: BRAIN ABSCESS
     Dosage: 10 MG, UNK
     Route: 065
  8. DEXAMETHASONE (NGX) [Suspect]
     Dosage: 7.5 MG, UNK
     Route: 065
  9. DEXAMETHASONE (NGX) [Suspect]
     Dosage: 5 MG, UNK
     Route: 065
  10. PYRAZINAMIDE [Suspect]
     Indication: PULMONARY TUBERCULOSIS
     Dosage: 1500 MG, UNK
     Route: 065
  11. PYRAZINAMIDE [Suspect]
     Indication: TUBERCULOUS PLEURISY

REACTIONS (15)
  - ABDOMINAL ABSCESS [None]
  - ABDOMINAL PAIN [None]
  - ABDOMINAL REBOUND TENDERNESS [None]
  - ABSCESS DRAINAGE [None]
  - BRAIN OEDEMA [None]
  - DYSARTHRIA [None]
  - FACIAL SPASM [None]
  - HEADACHE [None]
  - HEMIPARESIS [None]
  - LAPAROTOMY [None]
  - MOBILITY DECREASED [None]
  - MUSCULAR WEAKNESS [None]
  - PERITONEAL TUBERCULOSIS [None]
  - PYREXIA [None]
  - TUBERCULOSIS OF CENTRAL NERVOUS SYSTEM [None]
